FAERS Safety Report 5901011-7 (Version None)
Quarter: 2008Q3

REPORT INFORMATION
  Report Type: 
  Country: None (occurrence: None)
  Receive Date: 20080924
  Receipt Date: 20080915
  Transmission Date: 20090109
  Serious: Yes (Hospitalization)
  Sender: FDA-Public Use
  Company Number: 2008-183743-NL

PATIENT
  Age: 94 Year
  Sex: Female

DRUGS (10)
  1. MIRTAZAPINE [Suspect]
     Dosage: 1 DF ORAL
     Route: 048
     Dates: start: 20080818, end: 20080819
  2. SERTRALINE HYDROCHLORIDE [Suspect]
     Dosage: ORAL
     Route: 048
     Dates: start: 20080809, end: 20080818
  3. ATENOLOL [Concomitant]
  4. ACETAMINOPHEN [Concomitant]
  5. FLECAINIDE ACETATE [Concomitant]
  6. ZOPULONE [Concomitant]
  7. IXPRIM [Concomitant]
  8. FUROSEMIDE [Concomitant]
  9. FLUINDIONE [Concomitant]
  10. MEGESTROL ACETATE [Concomitant]

REACTIONS (5)
  - CHOLESTASIS [None]
  - FACE OEDEMA [None]
  - FALL [None]
  - JAUNDICE [None]
  - PRURITUS [None]
